FAERS Safety Report 7598641-6 (Version None)
Quarter: 2011Q3

REPORT INFORMATION
  Report Type: 
  Country: None (occurrence: None)
  Receive Date: 20110711
  Receipt Date: 20110627
  Transmission Date: 20111222
  Serious: Yes (Hospitalization)
  Sender: FDA-Public Use
  Company Number: JP-BRISTOL-MYERS SQUIBB COMPANY-15881899

PATIENT
  Age: 63 Year
  Sex: Female

DRUGS (9)
  1. MAGMITT [Concomitant]
  2. LAXOBERON [Concomitant]
  3. MIGLITOL [Concomitant]
  4. AMARYL [Concomitant]
  5. METFORMIN HCL [Suspect]
     Indication: DIABETES MELLITUS
     Route: 048
  6. ACTOS [Concomitant]
  7. HYDROCHLOROTHIAZIDE [Concomitant]
  8. ALDACTONE [Concomitant]
  9. VITANEURIN [Concomitant]

REACTIONS (16)
  - LACTIC ACIDOSIS [None]
  - RENAL FAILURE ACUTE [None]
  - LOSS OF CONSCIOUSNESS [None]
  - BLOOD PRESSURE DIASTOLIC DECREASED [None]
  - DRUG EFFECT DELAYED [None]
  - BALANCE DISORDER [None]
  - APHAGIA [None]
  - MIGRAINE WITH AURA [None]
  - OCCULT BLOOD POSITIVE [None]
  - ABDOMINAL PAIN [None]
  - EJECTION FRACTION DECREASED [None]
  - HAEMODIALYSIS [None]
  - HYPOKALAEMIA [None]
  - DEHYDRATION [None]
  - HYPOGLYCAEMIA [None]
  - INFECTION [None]
